FAERS Safety Report 4552467-6 (Version None)
Quarter: 2005Q1

REPORT INFORMATION
  Report Type: 
  Country: None (occurrence: None)
  Receive Date: 20050114
  Receipt Date: 20040921
  Transmission Date: 20050727
  Serious: No
  Sender: FDA-Public Use
  Company Number: US-BRISTOL-MYERS SQUIBB COMPANY-12709002

PATIENT
  Sex: Female

DRUGS (1)
  1. CISPLATIN [Suspect]
     Route: 061
     Dates: start: 20040921, end: 20040921

REACTIONS (1)
  - ACCIDENTAL EXPOSURE [None]
